FAERS Safety Report 14447231 (Version 3)
Quarter: 2018Q4

REPORT INFORMATION
  Report Type: Spontaneous
  Country: FR (occurrence: FR)
  Receive Date: 20180126
  Receipt Date: 20181203
  Transmission Date: 20190204
  Serious: Yes (Other)
  Sender: FDA-Public Use
  Company Number: FR-TEVA-2018-FR-850358

PATIENT
  Age: 59 Year
  Sex: Female
  Weight: 44 kg

DRUGS (6)
  1. AMOXICILLIN. [Suspect]
     Active Substance: AMOXICILLIN
     Dosage: 1500 MILLIGRAM DAILY;
     Route: 048
     Dates: start: 20160915
  2. LORAMYC 50 MG, COMPRIM? BUCCOGINGIVAL MUCO-ADH?SIF [Suspect]
     Active Substance: MICONAZOLE
     Indication: BONE MARROW TRANSPLANT
     Dosage: 50 MILLIGRAM DAILY;
     Route: 002
     Dates: start: 20160915
  3. VFEND [Suspect]
     Active Substance: VORICONAZOLE
     Indication: BONE MARROW TRANSPLANT
     Dosage: 400 MILLIGRAM DAILY;
     Route: 048
     Dates: start: 20160915
  4. NEORAL [Suspect]
     Active Substance: CYCLOSPORINE
     Indication: BONE MARROW TRANSPLANT
     Dosage: 100 MILLIGRAM DAILY;
     Route: 048
     Dates: start: 20160915
  5. BACTRIM [Suspect]
     Active Substance: SULFAMETHOXAZOLE\TRIMETHOPRIM
     Route: 048
     Dates: start: 20160915
  6. URSOLVAN [Suspect]
     Active Substance: URSODIOL
     Indication: ALLOGENIC BONE MARROW TRANSPLANTATION THERAPY
     Dosage: 300 MILLIGRAM DAILY;
     Route: 048
     Dates: start: 20160915

REACTIONS (9)
  - Weight decreased [Not Recovered/Not Resolved]
  - Aphthous ulcer [Not Recovered/Not Resolved]
  - Haematuria [Recovering/Resolving]
  - Cystitis haemorrhagic [Recovering/Resolving]
  - Rash [Not Recovered/Not Resolved]
  - Product use in unapproved indication [Unknown]
  - Graft versus host disease [Not Recovered/Not Resolved]
  - Bacterial sepsis [Not Recovered/Not Resolved]
  - Tremor [Not Recovered/Not Resolved]

NARRATIVE: CASE EVENT DATE: 20160915
